FAERS Safety Report 12718575 (Version 1)
Quarter: 2016Q3

REPORT INFORMATION
  Report Type: Spontaneous
  Country: US (occurrence: US)
  Receive Date: 20160906
  Receipt Date: 20160906
  Transmission Date: 20161109
  Serious: No
  Sender: FDA-Public Use
  Company Number: US-009507513-1608USA011021

PATIENT
  Age: 17 Year
  Sex: Female
  Weight: 51.16 kg

DRUGS (2)
  1. ABILIFY [Concomitant]
     Active Substance: ARIPIPRAZOLE
  2. NEXPLANON [Suspect]
     Active Substance: ETONOGESTREL
     Indication: CONTRACEPTION
     Dosage: 1 DF, UNK
     Dates: start: 20150430

REACTIONS (2)
  - Muscle spasms [Unknown]
  - Implant site pain [Unknown]

NARRATIVE: CASE EVENT DATE: 20160430
